FAERS Safety Report 19976888 (Version 1)
Quarter: 2021Q4

REPORT INFORMATION
  Report Type: Spontaneous
  Country: CA (occurrence: CA)
  Receive Date: 20211020
  Receipt Date: 20211020
  Transmission Date: 20220303
  Serious: Yes (Other)
  Sender: FDA-Public Use
  Company Number: CA-TEVA-2021-CA-1966134

PATIENT
  Age: 70 Year
  Sex: Male

DRUGS (2)
  1. METHOTREXATE [Suspect]
     Active Substance: METHOTREXATE
     Indication: Psoriatic arthropathy
     Route: 065
  2. DESOXIMETASONE [Concomitant]
     Active Substance: DESOXIMETASONE
     Route: 065

REACTIONS (5)
  - Condition aggravated [Unknown]
  - Limb discomfort [Unknown]
  - Pain in extremity [Unknown]
  - Peripheral arterial occlusive disease [Unknown]
  - Peripheral swelling [Unknown]
